FAERS Safety Report 19842182 (Version 2)
Quarter: 2021Q3

REPORT INFORMATION
  Report Type: Spontaneous
  Country: SI (occurrence: SI)
  Receive Date: 20210916
  Receipt Date: 20210922
  Transmission Date: 20211014
  Serious: Yes (Other)
  Sender: FDA-Public Use
  Company Number: SI-MYLANLABS-2021M1062266

PATIENT
  Age: 65 Year
  Sex: Female

DRUGS (6)
  1. ADALIMUMAB [Suspect]
     Active Substance: ADALIMUMAB
     Indication: RHEUMATOID ARTHRITIS
     Dosage: UNK
     Route: 065
  2. TOFACITINIB [Suspect]
     Active Substance: TOFACITINIB
     Indication: RHEUMATOID ARTHRITIS
     Dosage: 5 MILLIGRAM, BID
     Route: 048
  3. METHYLPREDNISOLONE. [Suspect]
     Active Substance: METHYLPREDNISOLONE
     Indication: RHEUMATOID ARTHRITIS
     Dosage: 2 MILLIGRAM, QOD
     Route: 065
  4. METHOTREXATE. [Suspect]
     Active Substance: METHOTREXATE
     Indication: RHEUMATOID ARTHRITIS
     Dosage: UNK
     Route: 065
  5. METHOTREXATE. [Suspect]
     Active Substance: METHOTREXATE
     Dosage: 10 MILLIGRAM, QW
     Route: 065
  6. RITUXIMAB. [Suspect]
     Active Substance: RITUXIMAB
     Indication: RHEUMATOID ARTHRITIS
     Dosage: UNK
     Route: 065

REACTIONS (4)
  - Bacteraemia [Recovered/Resolved]
  - Erythema [Unknown]
  - Hypogammaglobulinaemia [Unknown]
  - Lumbar spinal stenosis [Unknown]
